FAERS Safety Report 7686013-5 (Version None)
Quarter: 2011Q3

REPORT INFORMATION
  Report Type: 
  Country: None (occurrence: None)
  Receive Date: 20110816
  Receipt Date: 20110728
  Transmission Date: 20111222
  Serious: No
  Sender: FDA-Public Use
  Company Number: US-PFIZER INC-2011181082

PATIENT
  Age: 2 Year
  Sex: Male

DRUGS (3)
  1. CHILDREN'S MOTRIN [Suspect]
     Indication: PYREXIA
  2. CHILDREN'S MOTRIN [Suspect]
     Indication: UPPER RESPIRATORY TRACT INFECTION
     Dosage: 2X/DAY
     Route: 048
     Dates: start: 20100111, end: 20100117
  3. AMOXICILLIN [Suspect]
     Indication: UPPER RESPIRATORY TRACT INFECTION
     Dosage: UNK
     Dates: start: 20100101

REACTIONS (3)
  - PITYRIASIS RUBRA PILARIS [None]
  - PRODUCT QUALITY ISSUE [None]
  - ABDOMINAL PAIN UPPER [None]
